FAERS Safety Report 7479126-4 (Version None)
Quarter: 2011Q2

REPORT INFORMATION
  Report Type: 
  Country: None (occurrence: None)
  Receive Date: 20110513
  Receipt Date: 20110511
  Transmission Date: 20111010
  Serious: Yes (Life-Threatening, Hospitalization, Other)
  Sender: FDA-Public Use
  Company Number: JP-B.I. PHARMACEUTICALS,INC./RIDGEFIELD-2011-BP-10130NB

PATIENT
  Sex: Male
  Weight: 58 kg

DRUGS (7)
  1. DUTASTERIDE [Concomitant]
     Indication: BENIGN PROSTATIC HYPERPLASIA
     Dosage: 0.5 MG
     Route: 048
     Dates: start: 20100101
  2. RABEPRAZOLE SODIUM [Concomitant]
     Dosage: 10 MG
     Route: 048
     Dates: start: 20100101
  3. BISOPROLOL FUMARATE [Concomitant]
     Indication: ATRIAL FIBRILLATION
     Dosage: 5 MG
     Route: 048
     Dates: start: 20110208, end: 20110401
  4. CONTOMIN [Concomitant]
     Indication: NEUROSIS
     Dosage: 25 MG
     Route: 048
     Dates: start: 20110322
  5. PRADAXA [Suspect]
     Indication: ATRIAL FIBRILLATION
     Dosage: 220 MG
     Route: 048
     Dates: start: 20110322, end: 20110406
  6. DIART [Concomitant]
     Indication: CARDIAC FAILURE CHRONIC
     Dosage: 30 MG
     Route: 048
     Dates: start: 20110314, end: 20110401
  7. SUNRYTHM [Concomitant]
     Dosage: 75 MG
     Route: 048
     Dates: start: 20110307, end: 20110328

REACTIONS (7)
  - REGURGITATION [None]
  - DYSPEPSIA [None]
  - BLOOD PRESSURE IMMEASURABLE [None]
  - APHAGIA [None]
  - DEHYDRATION [None]
  - DIARRHOEA [None]
  - ABDOMINAL PAIN UPPER [None]
